FAERS Safety Report 25587577 (Version 2)
Quarter: 2025Q4

REPORT INFORMATION
  Report Type: Spontaneous
  Country: EU (occurrence: EU)
  Receive Date: 20250721
  Receipt Date: 20251204
  Transmission Date: 20260117
  Serious: Yes (Hospitalization)
  Sender: MERCK SHARP & DOHME LLC
  Company Number: None

PATIENT
  Age: 65 Year
  Sex: Female
  Weight: 56 kg

DRUGS (10)
  1. KEYTRUDA [Suspect]
     Active Substance: PEMBROLIZUMAB
     Indication: Lung squamous cell carcinoma metastatic
     Dosage: TIME INTERVAL: TOTAL
     Route: 042
     Dates: start: 20250304, end: 20250422
  2. CARBOPLATIN [Suspect]
     Active Substance: CARBOPLATIN
     Indication: Lung squamous cell carcinoma metastatic
     Dosage: TIME INTERVAL: TOTAL
     Route: 042
     Dates: start: 20250304, end: 20250422
  3. ESOMEPRAZOLE [Concomitant]
     Active Substance: ESOMEPRAZOLE
  4. PERINDOPRIL [Suspect]
     Active Substance: PERINDOPRIL
     Indication: Hypertension
     Route: 048
     Dates: end: 20250514
  5. ACETAMINOPHEN [Concomitant]
     Active Substance: ACETAMINOPHEN
  6. PACLITAXEL [Suspect]
     Active Substance: PACLITAXEL
     Indication: Lung squamous cell carcinoma metastatic
     Dosage: TIME INTERVAL: TOTAL
     Route: 042
     Dates: start: 20250304, end: 20250422
  7. AMLODIPINE [Concomitant]
     Active Substance: AMLODIPINE BESYLATE
  8. METFORMIN PAMOATE [Suspect]
     Active Substance: METFORMIN PAMOATE
     Indication: Type 2 diabetes mellitus
     Dosage: TIME INTERVAL: TOTAL
     Route: 048
     Dates: start: 20230701, end: 20250514
  9. ATORVASTATIN [Suspect]
     Active Substance: ATORVASTATIN
     Indication: Dyslipidaemia
     Route: 048
     Dates: end: 20250514
  10. KARDEGIC [Concomitant]
     Active Substance: ASPIRIN DL-LYSINE

REACTIONS (2)
  - Acute kidney injury [Recovered/Resolved]
  - Enterocolitis [Recovered/Resolved with Sequelae]

NARRATIVE: CASE EVENT DATE: 20250401
